FAERS Safety Report 9146944 (Version 2)
Quarter: 2013Q2

REPORT INFORMATION
  Report Type: Spontaneous
  Country: FR (occurrence: FR)
  Receive Date: 20130307
  Receipt Date: 20130607
  Transmission Date: 20140414
  Serious: Yes (Other)
  Sender: FDA-Public Use
  Company Number: FR-ROCHE-1198886

PATIENT
  Sex: Male

DRUGS (8)
  1. CELLCEPT [Suspect]
     Indication: PRODUCT USED FOR UNKNOWN INDICATION
     Route: 048
     Dates: start: 2008, end: 20130204
  2. CORTANCYL [Concomitant]
     Route: 065
     Dates: end: 20130107
  3. CORTANCYL [Concomitant]
     Route: 065
  4. ATARAX [Concomitant]
     Route: 048
     Dates: end: 20130107
  5. ATARAX [Concomitant]
     Route: 065
  6. DIFFU K [Concomitant]
     Route: 048
  7. PLAQUENIL [Concomitant]
     Route: 048
  8. FUROSEMIDE [Concomitant]
     Route: 048

REACTIONS (3)
  - Depression [Recovered/Resolved]
  - Dyspraxia [Recovering/Resolving]
  - Affective disorder [Recovered/Resolved]
